FAERS Safety Report 9500610 (Version 1)
Quarter: 2013Q1

REPORT INFORMATION
  Report Type: Spontaneous
  Country: US (occurrence: None)
  Receive Date: 20130107
  Receipt Date: 20130107
  Transmission Date: 20140127
  Serious: No
  Sender: FDA-Public Use
  Company Number: PHEH2012US023241

PATIENT
  Age: 58 Year
  Sex: Male

DRUGS (1)
  1. GILENYA (FINGOLIMOD) CAPSULE [Suspect]
     Indication: MULTIPLE SCLEROSIS
     Route: 048

REACTIONS (5)
  - Depression [None]
  - Anger [None]
  - Somnolence [None]
  - Fatigue [None]
  - Depressed mood [None]
